FAERS Safety Report 20457584 (Version 2)
Quarter: 2022Q1

REPORT INFORMATION
  Report Type: Spontaneous
  Country: RS (occurrence: RS)
  Receive Date: 20220210
  Receipt Date: 20220310
  Transmission Date: 20220424
  Serious: Yes (Other)
  Sender: FDA-Public Use
  Company Number: RS-NOVARTISPH-NVSC2022RS029024

PATIENT
  Sex: Male

DRUGS (13)
  1. COSENTYX [Suspect]
     Active Substance: SECUKINUMAB
     Indication: Psoriatic arthropathy
     Dosage: 150 MG, QMO
     Route: 058
     Dates: start: 202106
  2. ARAVA [Concomitant]
     Active Substance: LEFLUNOMIDE
     Indication: Product used for unknown indication
     Dosage: 20 MG, QD
     Route: 065
  3. PRONISON [Concomitant]
     Active Substance: PREDNISONE
     Indication: Product used for unknown indication
     Dosage: 20 MG (FOR 7 DAYS)
     Route: 065
  4. PRONISON [Concomitant]
     Active Substance: PREDNISONE
     Dosage: 5 MG (ON 7 DAYS)
     Route: 065
  5. PRONISON [Concomitant]
     Active Substance: PREDNISONE
     Dosage: 10 MG, QD (DAILY DOSE SHOULD BE THE SAME UNTIL REUMATOLOGIST CONTROL EXAMINATION)
     Route: 065
  6. NAPROXEN [Concomitant]
     Active Substance: NAPROXEN
     Indication: Arthralgia
     Dosage: 375 MG, QD (1X1 IN THE PHASE OF PAINFUL JOINTS)
     Route: 065
  7. RAMIPRIL [Concomitant]
     Active Substance: RAMIPRIL
     Indication: Product used for unknown indication
     Dosage: 5 MG
     Route: 065
  8. BISOPROLOL [Concomitant]
     Active Substance: BISOPROLOL
     Indication: Product used for unknown indication
     Dosage: 2.5 MG
     Route: 065
  9. CORNELIN [Concomitant]
     Indication: Product used for unknown indication
     Dosage: 10 MG
     Route: 065
  10. FLEKAINID [Concomitant]
     Indication: Product used for unknown indication
     Dosage: 100 MG, QD
     Route: 065
  11. PRADAXA [Concomitant]
     Active Substance: DABIGATRAN ETEXILATE MESYLATE
     Indication: Product used for unknown indication
     Dosage: 150 MG, BID
     Route: 065
  12. VIGANTOL [Concomitant]
     Indication: Product used for unknown indication
     Dosage: 20 DRP, QW (SOLUTION)
     Route: 065
  13. PANTOPRAZOLE SODIUM [Concomitant]
     Active Substance: PANTOPRAZOLE SODIUM
     Indication: Product used for unknown indication
     Dosage: 40 MG, QD
     Route: 065

REACTIONS (6)
  - Pelvic fracture [Recovered/Resolved]
  - Femur fracture [Recovered/Resolved]
  - Fall [Recovered/Resolved]
  - Wrist fracture [Recovered/Resolved]
  - Gamma-glutamyltransferase increased [Recovered/Resolved]
  - Blood alkaline phosphatase increased [Recovered/Resolved]

NARRATIVE: CASE EVENT DATE: 20210801
